FAERS Safety Report 15735997 (Version 1)
Quarter: 2018Q4

REPORT INFORMATION
  Report Type: Spontaneous
  Country: CZ (occurrence: CZ)
  Receive Date: 20181218
  Receipt Date: 20181218
  Transmission Date: 20190205
  Serious: Yes (Hospitalization, Other)
  Sender: FDA-Public Use
  Company Number: PHHY2018CZ180313

PATIENT
  Sex: Male

DRUGS (1)
  1. DOCETAXEL. [Suspect]
     Active Substance: DOCETAXEL
     Indication: METASTASES TO LIVER
     Dosage: UNK
     Route: 065
     Dates: start: 201806, end: 201808

REACTIONS (11)
  - Melaena [Unknown]
  - C-reactive protein abnormal [Unknown]
  - Metastases to peritoneum [Not Recovered/Not Resolved]
  - Malignant ascites [Not Recovered/Not Resolved]
  - Malignant neoplasm progression [Not Recovered/Not Resolved]
  - Metastases to abdominal cavity [Not Recovered/Not Resolved]
  - Hepatic enzyme increased [Unknown]
  - Gastrooesophageal cancer [Not Recovered/Not Resolved]
  - Jaundice [Unknown]
  - Metastases to liver [Not Recovered/Not Resolved]
  - Leukocytosis [Unknown]

NARRATIVE: CASE EVENT DATE: 201808
